FAERS Safety Report 4300218-2 (Version None)
Quarter: 2004Q1

REPORT INFORMATION
  Report Type: 
  Country: None (occurrence: None)
  Receive Date: 20040218
  Receipt Date: 20040218
  Transmission Date: 20041129
  Serious: Yes (Hospitalization)
  Sender: FDA-Public Use
  Company Number: None

PATIENT
  Sex: Male
  Weight: 90.5 kg

DRUGS (3)
  1. ZYPREXA [Suspect]
     Dosage: 15 MG PO Q DAY
     Route: 048
     Dates: start: 20040120
  2. ZOLOFT [Concomitant]
  3. ELAVIL [Concomitant]

REACTIONS (3)
  - ANION GAP ABNORMAL [None]
  - BLOOD KETONE BODY PRESENT [None]
  - DIABETIC KETOACIDOSIS [None]
